FAERS Safety Report 10229821 (Version 3)
Quarter: 2014Q2

REPORT INFORMATION
  Report Type: Report from Study
  Country: GB (occurrence: GB)
  Receive Date: 20140611
  Receipt Date: 20140627
  Transmission Date: 20141212
  Serious: Yes (Hospitalization)
  Sender: FDA-Public Use
  Company Number: GB-009507513-1406GBR004118

PATIENT
  Age: 70 Year
  Sex: Male

DRUGS (2)
  1. VORINOSTAT [Suspect]
     Indication: PLASMA CELL MYELOMA
     Dosage: 300 MG, (DAY 1 TO 7 AND 15 TO 21) CYCLE: 21 DAYS
     Route: 048
     Dates: start: 20140418, end: 20140601
  2. LENALIDOMIDE [Suspect]
     Indication: PLASMA CELL MYELOMA
     Dosage: 10 MG, QD (FOR 21 DAYS)
     Route: 048
     Dates: start: 20140418, end: 20140601

REACTIONS (1)
  - Urosepsis [Recovered/Resolved with Sequelae]
